FAERS Safety Report 6588096 (Version 23)
Quarter: 2013Q4

REPORT INFORMATION
  Report Type: Spontaneous
  Country: US (occurrence: US)
  Receive Date: 20080319
  Receipt Date: 20131023
  Transmission Date: 20140711
  Serious: Yes (Death, Hospitalization, Other)
  Sender: FDA-Public Use
  Company Number: PHEH2008US02651

PATIENT
  Age: 53 Year
  Sex: Female
  Weight: 66 kg

DRUGS (46)
  1. ZOMETA [Suspect]
     Dosage: 4 MG, QW3
     Dates: start: 2001
  2. FOSAMAX [Concomitant]
  3. PROZAC [Concomitant]
  4. LEVOXYL [Concomitant]
  5. AROMASIN [Concomitant]
     Dosage: 25 MG, QD
  6. ZOLOFT (SERTRALINE HYDROCHLORIDE) [Concomitant]
     Dosage: 50 MG, QD
  7. SYNTHROID [Concomitant]
  8. VITAMIN E [Concomitant]
  9. MULTIVITAMINS [Concomitant]
  10. AMBIEN [Concomitant]
  11. MS CONTIN [Concomitant]
  12. LEXAPRO [Concomitant]
  13. VANCOMYCIN [Concomitant]
  14. FLAGYL [Concomitant]
  15. ABRAXANE [Concomitant]
  16. AVASTIN [Concomitant]
  17. GEMZAR [Concomitant]
     Dosage: 1.2 G, QD
  18. ALBUTEROL [Concomitant]
  19. PROTONIX ^PHARMACIA^ [Concomitant]
  20. BENADRYL ^ACHE^ [Concomitant]
     Dosage: 15 MG,
  21. NYSTATIN [Concomitant]
  22. ROCEPHIN [Concomitant]
     Dosage: 2 G,
  23. LASIX [Concomitant]
     Dosage: 40 MG,
     Route: 040
  24. DIFLUCAN DERM [Concomitant]
     Dosage: 200 MG,
  25. CELEBREX [Concomitant]
     Dosage: 200 MG,
  26. ATIVAN [Concomitant]
     Dosage: 1 MG,
     Route: 040
  27. XANAX [Concomitant]
     Route: 048
  28. NEUPOGEN [Concomitant]
  29. PROCRIT                            /00909301/ [Concomitant]
  30. DOXIL [Concomitant]
  31. PAXIL [Concomitant]
  32. ELAVIL [Concomitant]
  33. LYRICA [Concomitant]
  34. DECADRON                                /CAN/ [Concomitant]
  35. CIPRO ^MILES^ [Concomitant]
  36. PERCODAN [Concomitant]
  37. BIAXIN [Concomitant]
  38. SCOPOLAMINE [Concomitant]
  39. TEQUIN [Concomitant]
  40. KEFLEX                                  /UNK/ [Concomitant]
  41. VERSED [Concomitant]
  42. FENTANYL [Concomitant]
  43. CHEMOTHERAPEUTICS,OTHER [Concomitant]
  44. RADIATION [Concomitant]
     Dates: start: 2004
  45. PEN-VEE-K [Concomitant]
  46. GLUCOPHAGE [Concomitant]

REACTIONS (125)
  - Death [Fatal]
  - Osteonecrosis of jaw [Unknown]
  - General physical health deterioration [Unknown]
  - Pain [Unknown]
  - Anxiety [Unknown]
  - Anhedonia [Unknown]
  - Bone disorder [Unknown]
  - Disability [Unknown]
  - Depression [Unknown]
  - Periodontitis [Unknown]
  - Metastases to bone [Unknown]
  - Intervertebral disc space narrowing [Unknown]
  - Headache [Unknown]
  - Jaw fracture [Unknown]
  - Swelling [Unknown]
  - Arthritis [Unknown]
  - Weight decreased [Unknown]
  - Spinal osteoarthritis [Unknown]
  - Impaired healing [Unknown]
  - Eye irritation [Unknown]
  - Metastases to lung [Unknown]
  - Dyspnoea [Unknown]
  - Skin infection [Unknown]
  - Fistula [Unknown]
  - Haematoma [Unknown]
  - Fungal infection [Unknown]
  - Herpes simplex [Unknown]
  - Agranulocytosis [Unknown]
  - Oesophagitis [Unknown]
  - Pseudomembranous colitis [Unknown]
  - Clostridium difficile colitis [Unknown]
  - Gastritis [Unknown]
  - Pyrexia [Unknown]
  - Abdominal pain [Unknown]
  - Chronic sinusitis [Unknown]
  - Neutropenia [Unknown]
  - Asthenia [Unknown]
  - Cellulitis [Unknown]
  - Dehydration [Unknown]
  - Anaemia [Unknown]
  - Abdominal sepsis [Unknown]
  - Tachycardia [Unknown]
  - Pancytopenia [Unknown]
  - Wound infection staphylococcal [Unknown]
  - Pain in jaw [Unknown]
  - Pneumonia [Unknown]
  - Pleural effusion [Unknown]
  - Pneumonia aspiration [Unknown]
  - Osteomyelitis [Unknown]
  - Dysphagia [Unknown]
  - Purulent discharge [Unknown]
  - Stomatitis [Unknown]
  - Oral pain [Unknown]
  - Cachexia [Unknown]
  - Eating disorder [Unknown]
  - Breath odour [Unknown]
  - Fatigue [Unknown]
  - Neuropathy peripheral [Unknown]
  - Chest pain [Unknown]
  - Dysgeusia [Unknown]
  - Oral candidiasis [Unknown]
  - Metastases to skin [Unknown]
  - Diarrhoea haemorrhagic [Unknown]
  - Macrophages increased [Unknown]
  - Dental caries [Unknown]
  - Device related infection [Unknown]
  - Wound [Unknown]
  - Tenderness [Unknown]
  - Sinus disorder [Unknown]
  - Obstruction [Unknown]
  - Paranasal sinus mucosal hypertrophy [Unknown]
  - Nasal disorder [Unknown]
  - Atrophic vulvovaginitis [Unknown]
  - Diabetes mellitus [Unknown]
  - Intervertebral disc protrusion [Unknown]
  - Dry eye [Unknown]
  - Arthropathy [Unknown]
  - Insomnia [Unknown]
  - Dacryostenosis acquired [Unknown]
  - Lacrimation increased [Unknown]
  - Mitral valve incompetence [Unknown]
  - Knee deformity [Unknown]
  - Hyperaemia [Unknown]
  - Bronchiectasis [Unknown]
  - Hypercalcaemia [Unknown]
  - Hypervolaemia [Unknown]
  - Metastases to pelvis [Unknown]
  - Metastases to spine [Unknown]
  - Osteosclerosis [Unknown]
  - Lung infiltration [Unknown]
  - Spinal disorder [Unknown]
  - Gingivitis [Unknown]
  - Back pain [Unknown]
  - Oedema [Unknown]
  - Bronchitis [Unknown]
  - Chest wall abscess [Unknown]
  - Aortic disorder [Unknown]
  - Lip ulceration [Unknown]
  - Fall [Unknown]
  - Fractured sacrum [Unknown]
  - Lymphoedema [Unknown]
  - Muscle fibrosis [Unknown]
  - Gastroenteritis [Unknown]
  - Bone swelling [Unknown]
  - Erythema [Unknown]
  - Mouth haemorrhage [Unknown]
  - Urinary retention [Unknown]
  - Pulmonary congestion [Unknown]
  - Muscle atrophy [Unknown]
  - Pneumonitis [Unknown]
  - Abscess jaw [Unknown]
  - Mucosal inflammation [Unknown]
  - Sepsis [Unknown]
  - Pneumothorax [Unknown]
  - Pulmonary bulla [Unknown]
  - Rib fracture [Unknown]
  - Osteoarthritis [Unknown]
  - Pulmonary oedema [Unknown]
  - Osteopenia [Unknown]
  - Bacterial infection [Unknown]
  - Paroxysmal nocturnal haemoglobinuria [Unknown]
  - Oral disorder [Unknown]
  - Balance disorder [Unknown]
  - Urinary incontinence [Unknown]
  - Gait disturbance [Unknown]
